FAERS Safety Report 7778592-4 (Version None)
Quarter: 2011Q3

REPORT INFORMATION
  Report Type: 
  Country: None (occurrence: None)
  Receive Date: 20110926
  Receipt Date: 20110914
  Transmission Date: 20111222
  Serious: Yes (Other)
  Sender: FDA-Public Use
  Company Number: HU-BAYER-2011-086125

PATIENT
  Age: 36 Year
  Sex: Female

DRUGS (1)
  1. MIRENA [Suspect]
     Indication: CONTRACEPTION
     Dosage: 20 MCG/24HR, CONT
     Route: 015
     Dates: start: 20110616, end: 20110628

REACTIONS (5)
  - FATIGUE [None]
  - NAUSEA [None]
  - VERTIGO [None]
  - GENITAL HAEMORRHAGE [None]
  - HYPOAESTHESIA [None]
